FAERS Safety Report 9736348 (Version 1)
Quarter: 2013Q4

REPORT INFORMATION
  Report Type: Spontaneous
  Country: US (occurrence: None)
  Receive Date: 20131204
  Receipt Date: 20131204
  Transmission Date: 20140711
  Serious: Yes (Death)
  Sender: FDA-Public Use
  Company Number: UTC-041290

PATIENT
  Age: 56 Year
  Sex: Female
  Weight: 72.27 kg

DRUGS (1)
  1. REMODULIN [Suspect]
     Indication: COR PULMONALE CHRONIC
     Dosage: 30.24 UG/KG (0.021 UG/KG, 1 IN 1 MIN), INTRAVENOUS DRIP
     Route: 042
     Dates: start: 20131011

REACTIONS (1)
  - Death [None]
